FAERS Safety Report 7580003-9 (Version None)
Quarter: 2011Q2

REPORT INFORMATION
  Report Type: 
  Country: None (occurrence: None)
  Receive Date: 20110527
  Receipt Date: 20101108
  Transmission Date: 20111010
  Serious: Yes (Hospitalization, Other)
  Sender: FDA-Public Use
  Company Number: US200910005610

PATIENT
  Age: 41 Year
  Sex: Female
  Weight: 119.7 kg

DRUGS (13)
  1. TUMS /00108001/ (CALCIUM CARBONATE) [Concomitant]
  2. MOTRIN [Concomitant]
  3. TRAZODONE HCL [Concomitant]
  4. PYRIDIUM (PHENAZOPYRIDINE HYDROCHLORIDE) [Concomitant]
  5. EXENATIDE UNK STRENGTH PEN, DISPOSABLE DEVICE (EXENATIDE PEN (UNKNOWN [Concomitant]
  6. METFORMIN HCL [Concomitant]
  7. BYETTA [Suspect]
     Indication: DIABETES MELLITUS
     Dates: start: 20051001, end: 20080810
  8. VYTORIN [Concomitant]
  9. ACTOS [Concomitant]
  10. CYMBALTA [Concomitant]
  11. TOPAMAX [Concomitant]
  12. IRON (IRON) [Concomitant]
  13. BACTRIM [Concomitant]

REACTIONS (5)
  - NAUSEA [None]
  - WEIGHT DECREASED [None]
  - PANCREATITIS ACUTE [None]
  - RENAL FAILURE [None]
  - VOMITING [None]
